FAERS Safety Report 12231628 (Version 1)
Quarter: 2016Q2

REPORT INFORMATION
  Report Type: Spontaneous
  Country: US (occurrence: US)
  Receive Date: 20160401
  Receipt Date: 20160401
  Transmission Date: 20160815
  Serious: No
  Sender: FDA-Public Use
  Company Number: US-B.I. PHARMACEUTICALS,INC./RIDGEFIELD-2016-BI-17935BP

PATIENT
  Age: 35 Year
  Sex: Male
  Weight: 93 kg

DRUGS (2)
  1. VALSARTAN. [Concomitant]
     Active Substance: VALSARTAN
     Indication: HYPERTENSION
     Route: 048
  2. CATAPRES-TTS [Suspect]
     Active Substance: CLONIDINE
     Indication: HYPERTENSION
     Dosage: DOSE PER APPLICATION: 7.5 MG DAILY DOSE: (0.3 MG / DAY); FORMULATION: PATCH
     Route: 050
     Dates: start: 20151017

REACTIONS (1)
  - Skin discolouration [Unknown]
